FAERS Safety Report 4647659-1 (Version None)
Quarter: 2005Q2

REPORT INFORMATION
  Report Type: 
  Country: None (occurrence: None)
  Receive Date: 20050426
  Receipt Date: 20050409
  Transmission Date: 20051028
  Serious: Yes (Death)
  Sender: FDA-Public Use
  Company Number: DSA_26256_2005

PATIENT
  Age: 80 Year
  Sex: Male

DRUGS (5)
  1. TEVETEN PLUS [Suspect]
     Indication: HYPERTENSION
     Dosage: DF PO
     Route: 048
     Dates: start: 20040708, end: 20050110
  2. METFORMIN HCL [Concomitant]
  3. GLIBENHEXAL [Concomitant]
  4. BISOHEXAL PLUS [Concomitant]
  5. CAPTOPRIL [Concomitant]

REACTIONS (1)
  - METASTATIC BRONCHIAL CARCINOMA [None]
